FAERS Safety Report 16966053 (Version 1)
Quarter: 2019Q4

REPORT INFORMATION
  Report Type: Spontaneous
  Country: US (occurrence: US)
  Receive Date: 20191028
  Receipt Date: 20191028
  Transmission Date: 20200122
  Serious: No
  Sender: FDA-Public Use
  Company Number: US-HORIZON-PEN-0926-2019

PATIENT
  Age: 47 Year
  Sex: Female

DRUGS (1)
  1. PENNSAID [Suspect]
     Active Substance: DICLOFENAC SODIUM
     Indication: PAIN IN EXTREMITY
     Dosage: 2 PUMPS BID
     Dates: end: 20191020

REACTIONS (4)
  - Fluid retention [Unknown]
  - Palpitations [Unknown]
  - Weight increased [Unknown]
  - Off label use [Unknown]
